FAERS Safety Report 7440043-7 (Version None)
Quarter: 2011Q2

REPORT INFORMATION
  Report Type: 
  Country: None (occurrence: None)
  Receive Date: 20110427
  Receipt Date: 20101213
  Transmission Date: 20111010
  Serious: Yes (Hospitalization)
  Sender: FDA-Public Use
  Company Number: US-BAYER-201027941NA

PATIENT
  Age: 47 Year
  Sex: Female
  Weight: 69.545 kg

DRUGS (39)
  1. PREVACID [Concomitant]
     Indication: GASTROOESOPHAGEAL REFLUX DISEASE
     Dosage: 30 MG (DAILY DOSE), QD,
     Dates: start: 20060101, end: 20080101
  2. PREVACID [Concomitant]
     Indication: PEPTIC ULCER
  3. BIAXIN [Concomitant]
  4. HYDROCHLOROTHIAZIDE [Concomitant]
     Indication: HYPERTENSION
     Dates: start: 20060101, end: 20090101
  5. HYOSCYAMINE [Concomitant]
     Indication: GASTROINTESTINAL PAIN
     Dates: start: 20060101, end: 20080101
  6. PROMETHAZINE [Concomitant]
     Indication: HEADACHE
  7. TESTOSTERONE CYPIONATE [Concomitant]
     Indication: HYPOGONADISM
     Dates: start: 20050101
  8. METRONIDAZOLE [Concomitant]
  9. HYDROCHLOROTHIAZIDE [Concomitant]
  10. TOPAMAX [Concomitant]
  11. TORADOL [Concomitant]
     Indication: PAIN
  12. WELLBUTRIN SR [Concomitant]
     Indication: PRODUCT USED FOR UNKNOWN INDICATION
     Dosage: 1 IN THE MORNING X 7 DAYS; THEN 2 IN THE MORNING
  13. ATROVENT [Concomitant]
     Indication: ASTHMA
     Dosage: 0.03%
     Dates: start: 20050901, end: 20070601
  14. CLONIDINE [Concomitant]
     Indication: HYPERTENSION
     Dates: start: 20050501
  15. DOXYCYCLINE HYCLATE [Concomitant]
     Indication: ACNE
     Dosage: 100 MG (DAILY DOSE), QD,
     Dates: start: 19990101, end: 20080101
  16. NEXIUM [Concomitant]
     Indication: PEPTIC ULCER
  17. PREMARIN [Concomitant]
     Indication: PRODUCT USED FOR UNKNOWN INDICATION
     Dates: start: 20060101
  18. CLIMARA [Concomitant]
     Indication: MENOPAUSAL SYMPTOMS
     Route: 062
     Dates: start: 20050501, end: 20060601
  19. IRON [IRON] [Concomitant]
  20. UNCODEABLE ^UNCLASSIFIABLE^ [Concomitant]
  21. VITAMIN D [Concomitant]
     Indication: VITAMIN D DEFICIENCY
     Dates: start: 20050101
  22. CYCLOBENZAPRINE [Concomitant]
     Indication: MUSCLE RELAXANT THERAPY
     Dates: start: 20050101
  23. NEXIUM [Concomitant]
     Indication: GASTROOESOPHAGEAL REFLUX DISEASE
     Dosage: 40 MG (DAILY DOSE), QD,
     Dates: start: 20050101
  24. PROMETHAZINE [Concomitant]
     Indication: NAUSEA
     Dosage: PRN
     Dates: start: 20050101, end: 20060101
  25. V-R BISACODYL NOS [Concomitant]
     Indication: CONSTIPATION
     Dates: start: 20050101
  26. DULCOLAX [Concomitant]
  27. HYOSCYAMINE [Concomitant]
  28. LISINOPRIL [Concomitant]
     Indication: PRODUCT USED FOR UNKNOWN INDICATION
     Dates: start: 20060127
  29. TRAMADOL [Concomitant]
     Indication: FIBROMYALGIA
     Dosage: 3 TABLETS - 5 TIMES A DAY
     Route: 048
     Dates: start: 19970101
  30. ALBUTEROL [Concomitant]
     Indication: ASTHMA
  31. AMBIEN [Concomitant]
     Indication: INSOMNIA
     Dates: start: 20010101
  32. METOPROLOL [Concomitant]
     Indication: PRODUCT USED FOR UNKNOWN INDICATION
  33. SPIRONOLACTONE [Concomitant]
     Indication: PRODUCT USED FOR UNKNOWN INDICATION
     Dates: start: 20070314
  34. GLYCOLAX [Concomitant]
  35. YASMIN [Suspect]
     Indication: ACNE
     Route: 048
     Dates: start: 20060601, end: 20060623
  36. BUDESONIDE [Concomitant]
     Indication: ASTHMA
     Dates: start: 20050501
  37. FEXOFENADINE [Concomitant]
     Indication: MULTIPLE ALLERGIES
     Dates: start: 20060101, end: 20090101
  38. PULMICORT [Concomitant]
  39. CALCIUM CITRATE [Concomitant]

REACTIONS (5)
  - DEEP VEIN THROMBOSIS [None]
  - PAIN IN EXTREMITY [None]
  - DYSPNOEA [None]
  - OEDEMA PERIPHERAL [None]
  - CELLULITIS STAPHYLOCOCCAL [None]
